FAERS Safety Report 15170282 (Version 2)
Quarter: 2018Q3

REPORT INFORMATION
  Report Type: Spontaneous
  Country: JP (occurrence: JP)
  Receive Date: 20180720
  Receipt Date: 20180801
  Transmission Date: 20181010
  Serious: Yes (Death)
  Sender: FDA-Public Use
  Company Number: JP-AMGEN-JPNSP2018099046

PATIENT
  Age: 10 Decade
  Sex: Female

DRUGS (1)
  1. NESP [Suspect]
     Active Substance: DARBEPOETIN ALFA
     Indication: NEPHROGENIC ANAEMIA
     Dosage: 120 MUG, ONCE IN 5 WEEKS
     Route: 058
     Dates: start: 2017, end: 201807

REACTIONS (1)
  - Colitis ischaemic [Fatal]
